FAERS Safety Report 9018089 (Version 2)
Quarter: 2013Q1

REPORT INFORMATION
  Report Type: Spontaneous
  Country: CZ (occurrence: CZ)
  Receive Date: 20130117
  Receipt Date: 20130222
  Transmission Date: 20140127
  Serious: Yes (Death, Other)
  Sender: FDA-Public Use
  Company Number: PHHY2013CZ004270

PATIENT
  Age: 67 Year
  Sex: Male

DRUGS (1)
  1. DEXAMETHASONE [Suspect]
     Dosage: 8 MG, TID

REACTIONS (14)
  - Death [Fatal]
  - Pneumothorax [Unknown]
  - General physical health deterioration [Unknown]
  - Cerebral aspergillosis [Unknown]
  - Necrosis [Unknown]
  - Neurological symptom [Unknown]
  - Bronchopulmonary aspergillosis [Unknown]
  - Respiratory tract infection [Unknown]
  - Productive cough [Unknown]
  - Dyspnoea [Unknown]
  - Sputum purulent [Unknown]
  - Sputum discoloured [Unknown]
  - Crepitations [Unknown]
  - General symptom [Unknown]
